FAERS Safety Report 6097287-9 (Version None)
Quarter: 2009Q1

REPORT INFORMATION
  Report Type: 
  Country: None (occurrence: None)
  Receive Date: 20090226
  Receipt Date: 20090226
  Transmission Date: 20090719
  Serious: Yes (Hospitalization)
  Sender: FDA-Public Use
  Company Number: None

PATIENT
  Age: 63 Year
  Sex: Female
  Weight: 48.5 kg

DRUGS (9)
  1. HUMIRA [Suspect]
     Indication: PSORIASIS
     Dosage: 40MG INJECTION EVERY 2 WEEKS SQ, KNOW 3 DOSES GIVEN
     Route: 058
  2. HUMIRA [Suspect]
     Indication: RHEUMATOID ARTHRITIS
     Dosage: 40MG INJECTION EVERY 2 WEEKS SQ, KNOW 3 DOSES GIVEN
     Route: 058
  3. ALPRAZOLAM [Concomitant]
  4. FOLIC ACID [Concomitant]
  5. BENAZEPRIL HYDROCHLORIDE [Concomitant]
  6. TOPAMAX [Concomitant]
  7. ASPIRIN [Concomitant]
  8. CYMBALTA [Concomitant]
  9. LORA TAB [Concomitant]

REACTIONS (2)
  - ACUTE DISSEMINATED ENCEPHALOMYELITIS [None]
  - UNRESPONSIVE TO STIMULI [None]
